FAERS Safety Report 4782376-9 (Version None)
Quarter: 2005Q3

REPORT INFORMATION
  Report Type: 
  Country: None (occurrence: None)
  Receive Date: 20050914
  Receipt Date: 20050613
  Transmission Date: 20060218
  Serious: Yes (Death)
  Sender: FDA-Public Use
  Company Number: 163-20785-05060179

PATIENT
  Age: 81 Year
  Sex: Male

DRUGS (10)
  1. THALOMID [Suspect]
     Indication: MULTIPLE MYELOMA
     Dosage: QID, ORAL
     Route: 048
     Dates: start: 20010801, end: 20050520
  2. PRANDIN [Concomitant]
  3. DIATX (TRIOBE) [Concomitant]
  4. PRILOSEC [Concomitant]
  5. RITALIN [Concomitant]
  6. DARVOCET-N (PROPACET) [Concomitant]
  7. MIRALAX [Concomitant]
  8. SODIUM BICARBONATE [Concomitant]
  9. CALCIUM GLUCONATE [Concomitant]
  10. ASPIRIN [Concomitant]

REACTIONS (2)
  - DEATH [None]
  - DISEASE PROGRESSION [None]
